FAERS Safety Report 16865372 (Version 2)
Quarter: 2020Q1

REPORT INFORMATION
  Report Type: Report from Study
  Country: None (occurrence: IT)
  Receive Date: 20190930
  Receipt Date: 20200117
  Transmission Date: 20200409
  Serious: Yes (Hospitalization, Other)
  Sender: FDA-Public Use
  Company Number: IT-ABBVIE-19K-083-2943606-00

PATIENT
  Age: 34 Year
  Sex: Male

DRUGS (1)
  1. DUODOPA [Suspect]
     Active Substance: CARBIDOPA\LEVODOPA
     Indication: PARKINSON^S DISEASE
     Dosage: MD: 8+3??CR: 2,7??ED: 1,5
     Route: 050
     Dates: start: 20180723, end: 20190920

REACTIONS (3)
  - General physical health deterioration [Unknown]
  - Bedridden [Unknown]
  - Respiratory arrest [Recovered/Resolved]

NARRATIVE: CASE EVENT DATE: 20190901
